FAERS Safety Report 10288679 (Version 2)
Quarter: 2014Q3

REPORT INFORMATION
  Report Type: Spontaneous
  Country: US (occurrence: US)
  Receive Date: 20140709
  Receipt Date: 20140709
  Transmission Date: 20150326
  Serious: No
  Sender: FDA-Public Use
  Company Number: US-GILEAD-2013-0083528

PATIENT
  Age: 44 Year
  Sex: Female

DRUGS (3)
  1. VENTAVIS [Concomitant]
     Active Substance: ILOPROST
  2. LETAIRIS [Suspect]
     Active Substance: AMBRISENTAN
     Indication: PRODUCT USED FOR UNKNOWN INDICATION
     Dosage: 10 MG, QD
     Dates: start: 20101111
  3. REVATIO [Concomitant]
     Active Substance: SILDENAFIL CITRATE

REACTIONS (10)
  - Malaise [Unknown]
  - Oropharyngeal pain [Unknown]
  - Flushing [Unknown]
  - Fall [Unknown]
  - Chest discomfort [Unknown]
  - Product taste abnormal [Unknown]
  - Migraine [Unknown]
  - Dizziness [Unknown]
  - Upper respiratory tract infection [Unknown]
  - Pharyngitis [Unknown]

NARRATIVE: CASE EVENT DATE: 20130924
